FAERS Safety Report 23684982 (Version 1)
Quarter: 2024Q1

REPORT INFORMATION
  Report Type: Spontaneous
  Country: US (occurrence: US)
  Receive Date: 20240328
  Receipt Date: 20240328
  Transmission Date: 20240410
  Serious: No
  Sender: FDA-Public Use
  Company Number: US-NEUROCRINE BIOSCIENCES INC.-2024NBI02632

PATIENT
  Sex: Female

DRUGS (2)
  1. INGREZZA [Suspect]
     Active Substance: VALBENAZINE
     Indication: Product used for unknown indication
     Dosage: 40 MILLIGRAM, SAMPLES
     Route: 065
  2. ABILIFY MAINTENA [Concomitant]
     Active Substance: ARIPIPRAZOLE

REACTIONS (3)
  - Hypotension [Unknown]
  - Hyperhidrosis [Unknown]
  - Dizziness [Unknown]
